FAERS Safety Report 6338516-3 (Version None)
Quarter: 2009Q3

REPORT INFORMATION
  Report Type: 
  Country: None (occurrence: None)
  Receive Date: 20090901
  Receipt Date: 20090820
  Transmission Date: 20100115
  Serious: Yes (Hospitalization)
  Sender: FDA-Public Use
  Company Number: 230533K09BRA

PATIENT
  Sex: Female

DRUGS (8)
  1. REBIF [Suspect]
     Indication: RELAPSING-REMITTING MULTIPLE SCLEROSIS
     Dosage: 22 MCG, 3 IN 1 WEEKS;
     Dates: start: 20030116
  2. LEXOTAN (BROMAZEPRAM) [Concomitant]
  3. DORMONID (MIDAZOLAM) [Concomitant]
  4. RENITEC (ENALAPRIL) [Concomitant]
  5. NORVASC [Concomitant]
  6. DULCOLAX [Concomitant]
  7. MOTILIUM [Concomitant]
  8. LUFTAL (DIMETICONE) [Concomitant]

REACTIONS (6)
  - APHAGIA [None]
  - BLOOD CHOLESTEROL INCREASED [None]
  - DEATH OF RELATIVE [None]
  - DEPRESSION [None]
  - FAECALOMA [None]
  - HYPERTENSION [None]
